FAERS Safety Report 6722093-9 (Version None)
Quarter: 2010Q2

REPORT INFORMATION
  Report Type: 
  Country: None (occurrence: None)
  Receive Date: 20100512
  Receipt Date: 20100506
  Transmission Date: 20101027
  Serious: Yes (Other)
  Sender: FDA-Public Use
  Company Number: US-ELI_LILLY_AND_COMPANY-US201005001801

PATIENT
  Sex: Male

DRUGS (1)
  1. HUMULIN 50/50 [Suspect]
     Indication: TYPE 2 DIABETES MELLITUS
     Dosage: 25 U, 3/D
     Dates: start: 20010101

REACTIONS (1)
  - RENAL FAILURE [None]
